FAERS Safety Report 24940001 (Version 1)
Quarter: 2025Q1

REPORT INFORMATION
  Report Type: Spontaneous
  Country: FR (occurrence: FR)
  Receive Date: 20250207
  Receipt Date: 20250207
  Transmission Date: 20250408
  Serious: Yes (Hospitalization, Other)
  Sender: AUROBINDO
  Company Number: FR-AFSSAPS-MP2025000110

PATIENT
  Age: 62 Year
  Sex: Female

DRUGS (3)
  1. LETROZOLE [Suspect]
     Active Substance: LETROZOLE
     Indication: Breast cancer
     Route: 048
     Dates: start: 20230515, end: 20240704
  2. KEYTRUDA [Suspect]
     Active Substance: PEMBROLIZUMAB
     Indication: Breast cancer
     Route: 042
     Dates: start: 20230302, end: 20240704
  3. ADO-TRASTUZUMAB EMTANSINE [Suspect]
     Active Substance: ADO-TRASTUZUMAB EMTANSINE
     Indication: Breast cancer
     Route: 042
     Dates: start: 20230403, end: 20240704

REACTIONS (2)
  - Hepatic cytolysis [Recovered/Resolved]
  - Immune-mediated cholangitis [Recovered/Resolved]

NARRATIVE: CASE EVENT DATE: 20240612
